FAERS Safety Report 7299012-2 (Version None)
Quarter: 2011Q1

REPORT INFORMATION
  Report Type: 
  Country: None (occurrence: None)
  Receive Date: 20110217
  Receipt Date: 20110215
  Transmission Date: 20110831
  Serious: Yes (Hospitalization)
  Sender: FDA-Public Use
  Company Number: DE-JNJFOC-20090803861

PATIENT
  Sex: Female
  Weight: 139 kg

DRUGS (11)
  1. STELARA [Suspect]
     Indication: PSORIASIS
     Route: 058
     Dates: start: 20090206, end: 20090527
  2. YASMIN [Concomitant]
     Indication: CONTRACEPTION
     Route: 048
  3. IBUPROFEN [Concomitant]
     Indication: PAIN OF SKIN
     Route: 048
  4. TRAMADOL HCL [Concomitant]
     Indication: PAIN OF SKIN
     Route: 048
  5. NOVALGIN [Concomitant]
     Indication: PAIN OF SKIN
     Route: 048
  6. METHOTREXATE [Concomitant]
     Route: 058
  7. STELARA [Suspect]
     Route: 058
     Dates: start: 20090206, end: 20090527
  8. APROVEL [Concomitant]
     Indication: HYPERTENSION
     Route: 048
  9. OMEPRAZOLE [Concomitant]
     Indication: GASTROINTESTINAL DISORDER THERAPY
     Route: 048
  10. FOLIC ACID [Concomitant]
     Route: 048
  11. STELARA [Suspect]
     Route: 058
     Dates: start: 20090206, end: 20090527

REACTIONS (2)
  - PNEUMONIA [None]
  - PSORIASIS [None]
